FAERS Safety Report 6993871-6 (Version None)
Quarter: 2010Q3

REPORT INFORMATION
  Report Type: 
  Country: None (occurrence: None)
  Receive Date: 20100917
  Receipt Date: 20080201
  Transmission Date: 20110219
  Serious: Yes (Hospitalization)
  Sender: FDA-Public Use
  Company Number: US-ASTRAZENECA-2006UW09068

PATIENT
  Age: 19998 Day
  Sex: Male

DRUGS (24)
  1. SEROQUEL [Suspect]
     Indication: DEPRESSION
     Dosage: 25 MG TO 300 MG
     Route: 048
     Dates: start: 20040101, end: 20050901
  2. SEROQUEL [Suspect]
     Indication: ANXIETY
     Dosage: 25 MG TO 300 MG
     Route: 048
     Dates: start: 20040101, end: 20050901
  3. SEROQUEL [Suspect]
     Indication: BIPOLAR DISORDER
     Dosage: 25 MG TO 300 MG
     Route: 048
     Dates: start: 20040101, end: 20050901
  4. SEROQUEL [Suspect]
     Dosage: 25 MG TO 300 MG
     Route: 048
     Dates: start: 20040112
  5. SEROQUEL [Suspect]
     Dosage: 25 MG TO 300 MG
     Route: 048
     Dates: start: 20040112
  6. SEROQUEL [Suspect]
     Dosage: 25 MG TO 300 MG
     Route: 048
     Dates: start: 20040112
  7. RISPERDAL [Suspect]
     Indication: DEPRESSION
     Dosage: 0.5 MG TO 3 MG
     Dates: start: 20010401, end: 20050601
  8. RISPERDAL [Suspect]
     Indication: ANXIETY
     Dosage: 0.5 MG TO 3 MG
     Dates: start: 20010401, end: 20050601
  9. RISPERDAL [Suspect]
     Indication: BIPOLAR DISORDER
     Dosage: 0.5 MG TO 3 MG
     Dates: start: 20010401, end: 20050601
  10. RISPERDAL [Suspect]
     Dates: start: 20040226
  11. RISPERDAL [Suspect]
     Dates: start: 20040226
  12. RISPERDAL [Suspect]
     Dates: start: 20040226
  13. EFFEXOR XR [Concomitant]
     Dates: start: 20050926
  14. LISINOPRIL [Concomitant]
     Dates: start: 20041025
  15. TRIAMTERENE AND HYDROCHLOROTHIAZIDE [Concomitant]
     Dosage: 75/50
     Dates: start: 20040402
  16. COUMADIN [Concomitant]
     Dates: start: 20040425
  17. OXYCODONE HCL AND ACETAMINOPHEN [Concomitant]
     Dosage: 5/325 TO 10/650
     Dates: start: 20040430
  18. CLONAZEPAM [Concomitant]
     Dates: start: 20030618
  19. WELLBUTRIN SR [Concomitant]
     Dates: start: 20040226
  20. ASPIRIN [Concomitant]
     Dates: start: 20040402
  21. BEXTRA [Concomitant]
     Dates: start: 20040406
  22. MOBIC [Concomitant]
     Dates: start: 20040824
  23. ZYPREXA [Concomitant]
     Dates: start: 20050818
  24. NAPROXEN [Concomitant]
     Dates: start: 20050926

REACTIONS (1)
  - DIABETES MELLITUS [None]
